FAERS Safety Report 21397814 (Version 1)
Quarter: 2022Q3

REPORT INFORMATION
  Report Type: Spontaneous
  Country: CN (occurrence: CN)
  Receive Date: 20220930
  Receipt Date: 20220930
  Transmission Date: 20221027
  Serious: Yes (Other)
  Sender: FDA-Public Use
  Company Number: None

PATIENT
  Age: 51 Year
  Sex: Female
  Weight: 60 kg

DRUGS (6)
  1. CYCLOPHOSPHAMIDE [Suspect]
     Active Substance: CYCLOPHOSPHAMIDE
     Indication: Breast cancer female
     Dosage: DOSAGE FORM: POWDER INJECTION, 900 MG ONCE DAILY, DILUTED WITH 50 ML OF 0.9% SODIUM CHLORIDE, STARTE
     Route: 041
     Dates: start: 20220902, end: 20220902
  2. SODIUM CHLORIDE [Suspect]
     Active Substance: SODIUM CHLORIDE
     Indication: Medication dilution
     Dosage: 250 ML ONCE A DAILY, DILUTED WITH 460 MG OF TRASTUZUMAB,STARTED AT 09:20, DOSAGE FORM: INJECTION
     Route: 041
     Dates: start: 20220901, end: 20220901
  3. SODIUM CHLORIDE [Suspect]
     Active Substance: SODIUM CHLORIDE
     Dosage: DOSAGE FORM: INJECTION, 50 ML ONCE A DAILY, DILUTED WITH 900 MG OF CYCLOPHOSPHAMIDE, AT 10:22
     Route: 041
     Dates: start: 20220902, end: 20220902
  4. SODIUM CHLORIDE [Suspect]
     Active Substance: SODIUM CHLORIDE
     Dosage: DOSAGE FORM: INJECTION, 250 ML ONCE A DAILY, DILUTED WITH 110 MG OF DOCETAXEL,STARTED AFTER 10:47
     Route: 041
     Dates: start: 20220902, end: 20220902
  5. DOCETAXEL [Suspect]
     Active Substance: DOCETAXEL
     Indication: Breast cancer female
     Dosage: 110 MG ONCE DAILY, DILUTED WITH 250 ML OF 0.9% SODIUM CHLORIDE, DOSAGE FORM: INJECTION, STARTED AFTE
     Route: 041
     Dates: start: 20220902, end: 20220902
  6. TRASTUZUMAB [Suspect]
     Active Substance: TRASTUZUMAB
     Indication: Breast cancer female
     Dosage: 460 MG ONCE DAILY, DILUTED WITH 250 ML OF 0.9% SODIUM CHLORIDE,STARTED AT 09:20
     Route: 041
     Dates: start: 20220901, end: 20220901

REACTIONS (3)
  - White blood cell count decreased [Recovered/Resolved]
  - Asthenia [Recovered/Resolved]
  - Fatigue [Unknown]

NARRATIVE: CASE EVENT DATE: 20220913
